FAERS Safety Report 17351655 (Version 1)
Quarter: 2020Q1

REPORT INFORMATION
  Report Type: Spontaneous
  Country: CA (occurrence: CA)
  Receive Date: 20200130
  Receipt Date: 20200130
  Transmission Date: 20200409
  Serious: Yes (Hospitalization)
  Sender: FDA-Public Use
  Company Number: CA-ALSI-202000042

PATIENT
  Age: 32 Year
  Sex: Female

DRUGS (8)
  1. FLOVENT DISKUS [Suspect]
     Active Substance: FLUTICASONE PROPIONATE
     Route: 055
  2. (FLUTICASONE FUROATE; VILANTEROL TRIFENATATE) [Suspect]
     Active Substance: FLUTICASONE FUROATE\VILANTEROL TRIFENATATE
  3. (GLYCOPYRRONIUM BROMIDE) [Suspect]
     Active Substance: GLYCOPYRRONIUM
  4. VENTOLIN [Suspect]
     Active Substance: ALBUTEROL SULFATE
  5. PREDNISONE. [Suspect]
     Active Substance: PREDNISONE
  6. OXYGEN. [Suspect]
     Active Substance: OXYGEN
     Indication: PRODUCT USED FOR UNKNOWN INDICATION
     Route: 065
  7. VENTOLIN [Suspect]
     Active Substance: ALBUTEROL SULFATE
  8. (OMALIZUMAB) [Suspect]
     Active Substance: OMALIZUMAB

REACTIONS (17)
  - Blood count abnormal [Unknown]
  - Obstructive airways disorder [Unknown]
  - Retinal disorder [Unknown]
  - Diarrhoea [Unknown]
  - Loss of personal independence in daily activities [Unknown]
  - Chest discomfort [Unknown]
  - Oedema peripheral [Unknown]
  - Therapeutic product effect incomplete [Unknown]
  - Upper respiratory tract infection [Unknown]
  - Dyspnoea [Unknown]
  - Wheezing [Unknown]
  - Atelectasis [Unknown]
  - Breath sounds abnormal [Unknown]
  - Cough [Unknown]
  - Sputum discoloured [Unknown]
  - Asthma [Unknown]
  - Pyrexia [Unknown]
